FAERS Safety Report 4273950-7 (Version None)
Quarter: 2004Q1

REPORT INFORMATION
  Report Type: 
  Country: None (occurrence: None)
  Receive Date: 20040115
  Receipt Date: 20040109
  Transmission Date: 20041129
  Serious: Yes (Other)
  Sender: FDA-Public Use
  Company Number: 2004193339JP

PATIENT
  Age: 2 Month
  Sex: Female

DRUGS (1)
  1. SOLU-MEDROL [Suspect]
     Indication: ASTHMA

REACTIONS (1)
  - PLATELET COUNT INCREASED [None]
